FAERS Safety Report 4575146-8 (Version None)
Quarter: 2005Q1

REPORT INFORMATION
  Report Type: 
  Country: None (occurrence: None)
  Receive Date: 20050208
  Receipt Date: 20050204
  Transmission Date: 20050727
  Serious: Yes (Hospitalization)
  Sender: FDA-Public Use
  Company Number: DE-MERCK-0502DEU00045

PATIENT
  Sex: Male

DRUGS (1)
  1. VIOXX [Suspect]
     Indication: BACK PAIN
     Route: 048

REACTIONS (1)
  - CEREBROVASCULAR ACCIDENT [None]
